FAERS Safety Report 4545175-9 (Version None)
Quarter: 2005Q1

REPORT INFORMATION
  Report Type: 
  Country: None (occurrence: None)
  Receive Date: 20050103
  Receipt Date: 20041222
  Transmission Date: 20050727
  Serious: Yes (Hospitalization)
  Sender: FDA-Public Use
  Company Number: 2004118319

PATIENT
  Age: 62 Year
  Sex: Female

DRUGS (4)
  1. XALATAN [Suspect]
     Indication: GLAUCOMA
     Dosage: OPHTHALMIC
     Route: 047
     Dates: start: 20031001
  2. PILOCARPINE HYDROCHLORIDE [Suspect]
     Indication: GLAUCOMA
     Dosage: 1 DROP (QD), OPHTHALMIC
     Route: 047
     Dates: start: 19980401, end: 20040201
  3. PIRENOXINE (PIRENOXINE) [Concomitant]
  4. JOJI TAKENAKA [Concomitant]

REACTIONS (2)
  - PUPILLARY DISORDER [None]
  - VASCULAR OCCLUSION [None]
